FAERS Safety Report 12851389 (Version 1)
Quarter: 2016Q4

REPORT INFORMATION
  Report Type: Spontaneous
  Country: US (occurrence: US)
  Receive Date: 20161014
  Receipt Date: 20161014
  Transmission Date: 20170207
  Serious: Yes (Hospitalization)
  Sender: FDA-Public Use
  Company Number: None

PATIENT
  Age: 66 Year
  Sex: Female
  Weight: 92.94 kg

DRUGS (3)
  1. DEXAMETHASONE. [Suspect]
     Active Substance: DEXAMETHASONE
     Dates: end: 20160715
  2. VELCADE [Suspect]
     Active Substance: BORTEZOMIB
     Dates: end: 20160718
  3. LENALIDOMIDE (CC-5013) [Suspect]
     Active Substance: LENALIDOMIDE
     Dates: end: 20160703

REACTIONS (4)
  - Acute kidney injury [None]
  - Toxicity to various agents [None]
  - Septic shock [None]
  - Urosepsis [None]

NARRATIVE: CASE EVENT DATE: 20160719
